FAERS Safety Report 4854452-3 (Version None)
Quarter: 2005Q4

REPORT INFORMATION
  Report Type: 
  Country: None (occurrence: None)
  Receive Date: 20051214
  Receipt Date: 20051214
  Transmission Date: 20060501
  Serious: No
  Sender: FDA-Public Use
  Company Number: None

PATIENT
  Sex: Male
  Weight: 112.6 kg

DRUGS (1)
  1. SIMVASTATN 80 MG [Suspect]
     Dosage: 80 MG DAILY PO
     Route: 048
     Dates: start: 20040930, end: 20050930

REACTIONS (3)
  - BLOOD CREATINE PHOSPHOKINASE INCREASED [None]
  - MYALGIA [None]
  - PNEUMONIA [None]
